FAERS Safety Report 5729849-X (Version None)
Quarter: 2008Q2

REPORT INFORMATION
  Report Type: 
  Country: None (occurrence: None)
  Receive Date: 20080502
  Receipt Date: 20080422
  Transmission Date: 20081010
  Serious: Yes (Hospitalization, Other)
  Sender: FDA-Public Use
  Company Number: 2008006378

PATIENT
  Sex: Female
  Weight: 73.4827 kg

DRUGS (2)
  1. COOL MINT LISTERINE POCKETPAKS (NO ACTIVE INGREDIENT) [Suspect]
     Indication: DENTAL DISORDER PROPHYLAXIS
     Dosage: 4-6 STRIPS PER DAY, ORAL
     Route: 048
     Dates: start: 20070301
  2. MULTIVITAMIN [Concomitant]

REACTIONS (9)
  - ABDOMINAL PAIN [None]
  - GASTRITIS [None]
  - GLOSSODYNIA [None]
  - MUSCULOSKELETAL CHEST PAIN [None]
  - NAUSEA [None]
  - OESOPHAGITIS [None]
  - ORAL DISCOMFORT [None]
  - SENSITIVITY OF TEETH [None]
  - TONGUE DISORDER [None]
